FAERS Safety Report 18767155 (Version 1)
Quarter: 2021Q1

REPORT INFORMATION
  Report Type: Spontaneous
  Country: BR (occurrence: BR)
  Receive Date: 20210121
  Receipt Date: 20210121
  Transmission Date: 20210419
  Serious: Yes (Other)
  Sender: FDA-Public Use
  Company Number: BR-SAMSUNG BIOEPIS-SB-2021-00872

PATIENT
  Age: 64 Year
  Sex: Female

DRUGS (2)
  1. BRENZYS [Suspect]
     Active Substance: ETANERCEPT
     Indication: PRODUCT USED FOR UNKNOWN INDICATION
     Dosage: UNKNOWN
     Route: 065
  2. ENBREL [Suspect]
     Active Substance: ETANERCEPT
     Indication: PRODUCT USED FOR UNKNOWN INDICATION
     Dosage: UNKNOWN, PRE?FILLED SYRINGE, TREATMENT STARTED 10 YEARS AGO FROM THE TIME OF THIS REPORT
     Route: 065

REACTIONS (7)
  - Periarthritis [Unknown]
  - Arthralgia [Unknown]
  - Hip surgery [Unknown]
  - Peripheral swelling [Unknown]
  - Diabetes mellitus [Unknown]
  - Pain in extremity [Unknown]
  - Femur fracture [Unknown]
